FAERS Safety Report 19203516 (Version 2)
Quarter: 2021Q2

REPORT INFORMATION
  Report Type: Other
  Country: US (occurrence: US)
  Receive Date: 20210503
  Receipt Date: 20210625
  Transmission Date: 20210717
  Serious: Yes (Hospitalization)
  Sender: FDA-Public Use
  Company Number: US-ROCHE-2818444

PATIENT
  Age: 75 Year
  Sex: Female
  Weight: 59.02 kg

DRUGS (6)
  1. THYROXINE [Concomitant]
     Active Substance: LEVOTHYROXINE
     Indication: HYPOTHYROIDISM
     Dosage: ONGOING; UNKNOWN
  2. SPIRONOLACTONE. [Concomitant]
     Active Substance: SPIRONOLACTONE
  3. ATENOLOL. [Concomitant]
     Active Substance: ATENOLOL
     Indication: ATRIAL TACHYCARDIA
     Dosage: ONGOING; UNKNOWN
  4. OCREVUS [Suspect]
     Active Substance: OCRELIZUMAB
     Indication: PRIMARY PROGRESSIVE MULTIPLE SCLEROSIS
     Dosage: SECOND HALF SPLIT DOSE IN EARLY JAN/2020
     Route: 041
     Dates: start: 20191223
  5. OCREVUS [Suspect]
     Active Substance: OCRELIZUMAB
     Dosage: DATE OF TREATMENT:  04/JAN/2021
     Route: 041
     Dates: start: 20200706
  6. ATORVASTATIN [Concomitant]
     Active Substance: ATORVASTATIN
     Indication: HYPERLIPIDAEMIA

REACTIONS (6)
  - Agitation [Not Recovered/Not Resolved]
  - Localised infection [Recovered/Resolved]
  - Skin laceration [Recovered/Resolved]
  - Confusional state [Not Recovered/Not Resolved]
  - Skin lesion [Not Recovered/Not Resolved]
  - Fall [Unknown]

NARRATIVE: CASE EVENT DATE: 202011
